FAERS Safety Report 23839817 (Version 2)
Quarter: 2024Q2

REPORT INFORMATION
  Report Type: Spontaneous
  Country: US (occurrence: US)
  Receive Date: 20240510
  Receipt Date: 20240528
  Transmission Date: 20240716
  Serious: Yes (Hospitalization, Disabling, Other)
  Sender: FDA-Public Use
  Company Number: US-009507513-2405USA001010

PATIENT
  Age: 47 Year
  Sex: Female

DRUGS (12)
  1. KEYTRUDA [Suspect]
     Active Substance: PEMBROLIZUMAB
     Indication: Breast cancer
     Dosage: 200 MILLIGRAM, Q3W
     Route: 042
     Dates: start: 20221027, end: 20240314
  2. CARBOPLATIN [Suspect]
     Active Substance: CARBOPLATIN
     Indication: Breast cancer
     Dosage: 230 MILLIGRAM, QW
     Dates: start: 20221027, end: 20230119
  3. PACLITAXEL [Suspect]
     Active Substance: PACLITAXEL
     Indication: Breast cancer
     Dosage: 170 MILLIGRAM, QW
     Dates: start: 20221027, end: 20230119
  4. CYCLOPHOSPHAMIDE [Suspect]
     Active Substance: CYCLOPHOSPHAMIDE
     Indication: Breast cancer
     Dosage: 1290 MILLIGRAM, Q3W
     Dates: start: 20230202, end: 20230417
  5. DOXORUBICIN [Suspect]
     Active Substance: DOXORUBICIN
     Indication: Breast cancer
     Dosage: 129 MILLIGRAM, Q3W
     Dates: start: 20230202, end: 20230417
  6. XANAX [Concomitant]
     Active Substance: ALPRAZOLAM
  7. LYRICA [Concomitant]
     Active Substance: PREGABALIN
  8. CYMBALTA [Concomitant]
     Active Substance: DULOXETINE HYDROCHLORIDE
  9. AMITRIPTYLINE [Concomitant]
     Active Substance: AMITRIPTYLINE
  10. AMLODIPINE [Concomitant]
     Active Substance: AMLODIPINE BESYLATE
  11. MOUNJARO [Concomitant]
     Active Substance: TIRZEPATIDE
  12. CARVEDILOL [Concomitant]
     Active Substance: CARVEDILOL

REACTIONS (28)
  - Immune-mediated neuropathy [Not Recovered/Not Resolved]
  - Respiratory failure [Unknown]
  - Necrosis [Unknown]
  - Pulmonary artery dilatation [Unknown]
  - Psychological trauma [Not Recovered/Not Resolved]
  - Intracranial aneurysm [Unknown]
  - Pancytopenia [Unknown]
  - Immune-mediated arthritis [Not Recovered/Not Resolved]
  - Immune-mediated lung disease [Not Recovered/Not Resolved]
  - Frustration tolerance decreased [Not Recovered/Not Resolved]
  - Toxicity to various agents [Unknown]
  - Stomatitis [Unknown]
  - Weight increased [Unknown]
  - Herpes zoster [Unknown]
  - Dysuria [Unknown]
  - Flank pain [Unknown]
  - Red cell distribution width increased [Unknown]
  - Albumin globulin ratio decreased [Unknown]
  - Aspartate aminotransferase decreased [Unknown]
  - Plantar fasciitis [Unknown]
  - Hot flush [Unknown]
  - Haemorrhoids [Unknown]
  - Brain fog [Unknown]
  - Vertigo [Unknown]
  - Dry mouth [Unknown]
  - Fatigue [Unknown]
  - Constipation [Unknown]
  - Insurance issue [Unknown]

NARRATIVE: CASE EVENT DATE: 20221201
